FAERS Safety Report 8471283-6 (Version None)
Quarter: 2012Q2

REPORT INFORMATION
  Report Type: 
  Country: None (occurrence: None)
  Receive Date: 20120627
  Receipt Date: 20120619
  Transmission Date: 20120825
  Serious: Yes (Hospitalization, Other)
  Sender: FDA-Public Use
  Company Number: US-BAYER-2011-062521

PATIENT
  Age: 30 Year
  Sex: Female
  Weight: 98 kg

DRUGS (3)
  1. FINACEA [Concomitant]
     Dosage: 15 %, 1 APPLICATION BID
     Route: 061
  2. YAZ [Suspect]
     Indication: PRODUCT USED FOR UNKNOWN INDICATION
     Dosage: UNK
     Route: 048
  3. NAFTIN [Concomitant]
     Dosage: 1%, 1 APPLICATION BID PRN

REACTIONS (3)
  - CHOLELITHIASIS [None]
  - PULMONARY EMBOLISM [None]
  - DYSPNOEA [None]
